FAERS Safety Report 22049765 (Version 1)
Quarter: 2023Q1

REPORT INFORMATION
  Report Type: Spontaneous
  Country: US (occurrence: None)
  Receive Date: 20230228
  Receipt Date: 20230228
  Transmission Date: 20230418
  Serious: Yes (Disabling)
  Sender: FDA-Public Use
  Company Number: None

PATIENT
  Age: 60 Year
  Sex: Female
  Weight: 87.75 kg

DRUGS (12)
  1. DIAZEPAM [Suspect]
     Active Substance: DIAZEPAM
     Indication: Muscle relaxant therapy
     Dosage: 1 TABLET 4 TIMES A DAY ORAL
     Route: 048
     Dates: start: 19800101, end: 20200325
  2. CITALOPRAM [Suspect]
     Active Substance: CITALOPRAM HYDROBROMIDE
     Indication: Depression
     Dosage: 2 CAPSULES AT BEDTIME  ORAL
     Route: 048
     Dates: start: 20050102, end: 20200102
  3. TRAZODONE [Suspect]
     Active Substance: TRAZODONE HYDROCHLORIDE
  4. PROGESTERONE [Concomitant]
     Active Substance: PROGESTERONE
  5. ESTROGENS [Concomitant]
     Active Substance: ESTROGENS
  6. LEVOTHYROXINE [Concomitant]
     Active Substance: LEVOTHYROXINE
  7. VITA D [Concomitant]
  8. THYROXINE [Concomitant]
     Active Substance: LEVOTHYROXINE
  9. TRAMADOL [Concomitant]
     Active Substance: TRAMADOL
  10. AMLODIPINE BESYLATE [Concomitant]
     Active Substance: AMLODIPINE BESYLATE
  11. METOPROLOL [Concomitant]
     Active Substance: METOPROLOL
  12. DIAZEPAM [Suspect]
     Active Substance: DIAZEPAM
     Indication: Anxiety

REACTIONS (31)
  - Pain [None]
  - Eye disorder [None]
  - Sleep disorder [None]
  - Migraine [None]
  - Headache [None]
  - Merycism [None]
  - Depression [None]
  - Akathisia [None]
  - Depersonalisation/derealisation disorder [None]
  - Autoscopy [None]
  - Overdose [None]
  - Influenza [None]
  - Intentional product use issue [None]
  - Personality disorder [None]
  - Irritable bowel syndrome [None]
  - Chronic fatigue syndrome [None]
  - Anger [None]
  - Mood swings [None]
  - Movement disorder [None]
  - Loss of personal independence in daily activities [None]
  - Reading disorder [None]
  - Impaired driving ability [None]
  - Stress [None]
  - Memory impairment [None]
  - Dementia [None]
  - Toothache [None]
  - Suicidal ideation [None]
  - Hyperacusis [None]
  - Parosmia [None]
  - Temperature intolerance [None]
  - Gastrointestinal disorder [None]

NARRATIVE: CASE EVENT DATE: 20150121
